FAERS Safety Report 21605502 (Version 1)
Quarter: 2022Q4

REPORT INFORMATION
  Report Type: Report from Study
  Country: TW (occurrence: None)
  Receive Date: 20221116
  Receipt Date: 20221116
  Transmission Date: 20230113
  Serious: Yes (Hospitalization)
  Sender: FDA-Public Use
  Company Number: 2022A375333

PATIENT
  Age: 69 Year
  Sex: Male

DRUGS (1)
  1. IMFINZI [Suspect]
     Active Substance: DURVALUMAB
     Dosage: 600.0MG UNKNOWN
     Route: 042
     Dates: start: 20220405

REACTIONS (4)
  - Asthenia [Unknown]
  - Neoplasm progression [Unknown]
  - Pyrexia [Unknown]
  - Drug ineffective [Unknown]
